FAERS Safety Report 11802830 (Version 1)
Quarter: 2015Q4

REPORT INFORMATION
  Report Type: Spontaneous
  Country: US (occurrence: US)
  Receive Date: 20151204
  Receipt Date: 20151204
  Transmission Date: 20160305
  Serious: Yes (Other)
  Sender: FDA-Public Use
  Company Number: US-BEH-2015054326

PATIENT
  Sex: Female
  Weight: 79 kg

DRUGS (12)
  1. STERILE WATER [Concomitant]
     Active Substance: WATER
  2. BERINERT [Suspect]
     Active Substance: HUMAN C1-ESTERASE INHIBITOR
     Indication: HEREDITARY ANGIOEDEMA
     Dosage: 500 UNIT VIAL (1500 IU AS DIRECTED)
     Route: 042
  3. EPIPEN [Concomitant]
     Active Substance: EPINEPHRINE
     Indication: ANAPHYLACTIC REACTION
  4. VENTOLIN [Concomitant]
     Active Substance: ALBUTEROL SULFATE
  5. ZOFRAN [Concomitant]
     Active Substance: ONDANSETRON HYDROCHLORIDE
  6. DIPHENHYDRAMINE. [Concomitant]
     Active Substance: DIPHENHYDRAMINE
     Indication: ANAPHYLACTIC REACTION
  7. CINRYZE [Concomitant]
     Active Substance: HUMAN C1-ESTERASE INHIBITOR
  8. PERCOCET [Concomitant]
     Active Substance: ACETAMINOPHEN\OXYCODONE HYDROCHLORIDE
  9. TRAMADOL. [Concomitant]
     Active Substance: TRAMADOL
  10. SYNTHROID [Concomitant]
     Active Substance: LEVOTHYROXINE SODIUM
  11. SODIUM CHLORIDE. [Concomitant]
     Active Substance: SODIUM CHLORIDE
     Indication: FLUSHING
  12. ZYRTEC [Concomitant]
     Active Substance: CETIRIZINE HYDROCHLORIDE

REACTIONS (2)
  - Infection [Unknown]
  - Hereditary angioedema [Unknown]
